FAERS Safety Report 6111053-7 (Version None)
Quarter: 2009Q1

REPORT INFORMATION
  Report Type: 
  Country: None (occurrence: None)
  Receive Date: 20090309
  Receipt Date: 20090309
  Transmission Date: 20090719
  Serious: Yes (Hospitalization, Disabling)
  Sender: FDA-Public Use
  Company Number: None

PATIENT
  Age: 43 Year
  Sex: Female
  Weight: 58.9676 kg

DRUGS (2)
  1. LAMISIL ORAL NORMAL ADULT DOSAGE [Suspect]
     Indication: ONYCHOMYCOSIS
     Dosage: NORMAL ADULT DOSAGE USUAL DOSAGE
     Dates: start: 19970413, end: 19970422
  2. LAMISIL ORAL NORMAL ADULT DOSAGE [Suspect]
     Indication: ONYCHOMYCOSIS
     Dosage: 1/2 USUALLY ADVISED ADULT DOSE NORMAL

REACTIONS (4)
  - ALOPECIA [None]
  - CONVULSION [None]
  - DISCOMFORT [None]
  - VICTIM OF ABUSE [None]
